FAERS Safety Report 8459154-2 (Version None)
Quarter: 2012Q2

REPORT INFORMATION
  Report Type: 
  Country: None (occurrence: None)
  Receive Date: 20120618
  Receipt Date: 20120614
  Transmission Date: 20120825
  Serious: Yes (Death, Hospitalization, Other)
  Sender: FDA-Public Use
  Company Number: ADR-2011-10453

PATIENT
  Sex: Female

DRUGS (1)
  1. LIORESAL [Suspect]
     Indication: MUSCLE SPASTICITY
     Dosage: UNK MCG, DAILY, INTRATH
     Route: 037
     Dates: start: 20060308, end: 20060601

REACTIONS (11)
  - DELUSION [None]
  - CONFUSIONAL STATE [None]
  - AGITATION [None]
  - DELIRIUM [None]
  - SOMNOLENCE [None]
  - RESTLESSNESS [None]
  - DISORIENTATION [None]
  - ILLUSION [None]
  - DRUG WITHDRAWAL SYNDROME [None]
  - HALLUCINATION, VISUAL [None]
  - ANXIETY [None]
